FAERS Safety Report 9902846 (Version 2)
Quarter: 2014Q1

REPORT INFORMATION
  Report Type: Spontaneous
  Country: ZA (occurrence: ZA)
  Receive Date: 20140217
  Receipt Date: 20140304
  Transmission Date: 20141002
  Serious: Yes (Hospitalization, Disabling, Other)
  Sender: FDA-Public Use
  Company Number: PHHY2014ZA017385

PATIENT
  Age: 69 Year
  Sex: Female

DRUGS (1)
  1. VOLTAREN OPHTHA [Suspect]
     Indication: EYE PAIN
     Dosage: UNK UKN, UNK
     Route: 061
     Dates: start: 2012

REACTIONS (11)
  - Corneal perforation [Recovered/Resolved with Sequelae]
  - Eye infection [Unknown]
  - Blindness [Unknown]
  - Blister [Unknown]
  - Feeling abnormal [Unknown]
  - Depressed mood [Unknown]
  - Acanthamoeba keratitis [Unknown]
  - Eye irritation [Unknown]
  - Eye pain [Unknown]
  - Ulcerative keratitis [Unknown]
  - Cataract [Unknown]
